FAERS Safety Report 7769950-2 (Version None)
Quarter: 2011Q3

REPORT INFORMATION
  Report Type: 
  Country: None (occurrence: None)
  Receive Date: 20110922
  Receipt Date: 20110920
  Transmission Date: 20111222
  Serious: Yes (Other)
  Sender: FDA-Public Use
  Company Number: CA-GLAXOSMITHKLINE-A0945223A

PATIENT
  Age: 61 Year
  Sex: Female

DRUGS (2)
  1. LIPITOR [Concomitant]
     Dates: end: 20110801
  2. ADVAIR DISKUS 100/50 [Suspect]
     Indication: PRODUCT USED FOR UNKNOWN INDICATION
     Dosage: 2PUFF TWICE PER DAY
     Route: 065

REACTIONS (1)
  - HEPATIC ENZYME INCREASED [None]
